FAERS Safety Report 6175194-0 (Version None)
Quarter: 2009Q2

REPORT INFORMATION
  Report Type: 
  Country: None (occurrence: None)
  Receive Date: 20090430
  Receipt Date: 20090126
  Transmission Date: 20091009
  Serious: No
  Sender: FDA-Public Use
  Company Number: US-ASTRAZENECA-2009UW02164

PATIENT
  Sex: Male
  Weight: 88.5 kg

DRUGS (5)
  1. NEXIUM [Suspect]
     Indication: OESOPHAGEAL DISORDER
     Route: 048
     Dates: start: 20081125
  2. LEVOTHYROXINE SODIUM [Concomitant]
  3. GLIPIZIDE SR [Concomitant]
  4. METFORMIN SR [Concomitant]
  5. SIMVASTATIN [Concomitant]

REACTIONS (2)
  - BLOOD GLUCOSE INCREASED [None]
  - THYROID FUNCTION TEST ABNORMAL [None]
